FAERS Safety Report 15325550 (Version 1)
Quarter: 2018Q3

REPORT INFORMATION
  Report Type: Spontaneous
  Country: US (occurrence: US)
  Receive Date: 20180822
  Receipt Date: 20180822
  Transmission Date: 20181010
  Serious: No
  Sender: FDA-Public Use
  Company Number: None

PATIENT

DRUGS (1)
  1. DOCO SHIELD [Suspect]
     Active Substance: DOCOSANOL

REACTIONS (2)
  - Drug ineffective [None]
  - Product label confusion [None]

NARRATIVE: CASE EVENT DATE: 20180822
